FAERS Safety Report 26078446 (Version 1)
Quarter: 2025Q4

REPORT INFORMATION
  Report Type: Report from Study
  Country: EU (occurrence: None)
  Receive Date: 20251123
  Receipt Date: 20251123
  Transmission Date: 20260119
  Serious: Yes (Death)
  Sender: AUROBINDO
  Company Number: EU-APOTEX-2017AP007333

PATIENT
  Age: 6 Year
  Sex: Male

DRUGS (8)
  1. CETIRIZINE [Suspect]
     Active Substance: CETIRIZINE HYDROCHLORIDE
     Indication: Cerebral palsy
     Route: 065
  2. IPRATROPIUM BROMIDE [Suspect]
     Active Substance: IPRATROPIUM BROMIDE
     Indication: Cerebral palsy
     Dosage: UNK
     Route: 065
  3. BOTOX [Suspect]
     Active Substance: ONABOTULINUMTOXINA
     Indication: Cerebral palsy
     Dosage: UNK
     Route: 065
  4. MELATONIN [Suspect]
     Active Substance: MELATONIN
     Indication: Cerebral palsy
     Dosage: UNK
     Route: 065
  5. SCOPOLAMINE [Suspect]
     Active Substance: SCOPOLAMINE
     Indication: Cerebral palsy
     Dosage: UNK
     Route: 065
  6. KETOTIFEN FUMARATE [Suspect]
     Active Substance: KETOTIFEN FUMARATE
     Indication: Cerebral palsy
     Dosage: UNK
     Route: 065
  7. BACLOFEN [Suspect]
     Active Substance: BACLOFEN
     Indication: Cerebral palsy
     Dosage: UNK
     Route: 065
  8. BECLOMETHASONE [Suspect]
     Active Substance: BECLOMETHASONE
     Indication: Cerebral palsy
     Dosage: UNK
     Route: 065

REACTIONS (1)
  - Death [Fatal]
